FAERS Safety Report 16123402 (Version 3)
Quarter: 2019Q2

REPORT INFORMATION
  Report Type: Spontaneous
  Country: US (occurrence: US)
  Receive Date: 20190327
  Receipt Date: 20190412
  Transmission Date: 20190711
  Serious: Yes (Other)
  Sender: FDA-Public Use
  Company Number: US-AKORN PHARMACEUTICALS-2019AKN00561

PATIENT
  Age: 16 Year
  Sex: Male
  Weight: 52.83 kg

DRUGS (5)
  1. FLUOXETINE [Concomitant]
     Active Substance: FLUOXETINE HYDROCHLORIDE
     Dosage: UNK
  2. MYORISAN [Suspect]
     Active Substance: ISOTRETINOIN
     Indication: ACNE CYSTIC
     Dosage: 20 MG, 2X/DAY
     Route: 048
     Dates: start: 20181031, end: 20181226
  3. FLUOXETINE [Concomitant]
     Active Substance: FLUOXETINE HYDROCHLORIDE
  4. MYORISAN [Suspect]
     Active Substance: ISOTRETINOIN
     Indication: ACNE CYSTIC
     Dosage: 30 MG, 2X/DAY
     Route: 048
     Dates: start: 20181227, end: 20190307
  5. MYORISAN [Suspect]
     Active Substance: ISOTRETINOIN
     Indication: ACNE CYSTIC
     Dosage: 40 MG, 2X/DAY
     Route: 048
     Dates: start: 20190308, end: 20190315

REACTIONS (9)
  - Anxiety [Not Recovered/Not Resolved]
  - Abscess limb [Recovered/Resolved]
  - Angular cheilitis [Unknown]
  - Suicidal ideation [Not Recovered/Not Resolved]
  - Cellulitis staphylococcal [Recovered/Resolved]
  - Depression [Not Recovered/Not Resolved]
  - Lip dry [Unknown]
  - Dry skin [Unknown]
  - Epistaxis [Recovered/Resolved]

NARRATIVE: CASE EVENT DATE: 2018
